FAERS Safety Report 9492718 (Version 2)
Quarter: 2013Q3

REPORT INFORMATION
  Report Type: Report from Study
  Country: CI (occurrence: CI)
  Receive Date: 20130830
  Receipt Date: 20130906
  Transmission Date: 20140515
  Serious: Yes (Other)
  Sender: FDA-Public Use
  Company Number: CI-ABBOTT-13P-084-1138426-00

PATIENT
  Age: 41 Year
  Sex: Female

DRUGS (2)
  1. ALUVIA [Suspect]
     Indication: HIV INFECTION
     Route: 048
     Dates: start: 20110126
  2. TRUVADA [Concomitant]
     Indication: HIV INFECTION
     Route: 048
     Dates: start: 20110126

REACTIONS (1)
  - Abortion spontaneous [Unknown]
